FAERS Safety Report 4942838-8 (Version None)
Quarter: 2006Q1

REPORT INFORMATION
  Report Type: 
  Country: None (occurrence: None)
  Receive Date: 20060314
  Receipt Date: 20060222
  Transmission Date: 20060701
  Serious: Yes (Other)
  Sender: FDA-Public Use
  Company Number: PHBS2006JP03034

PATIENT
  Age: 14 Year
  Sex: Male

DRUGS (5)
  1. CYCLOSPORINE [Suspect]
     Indication: BONE MARROW TRANSPLANT
     Route: 065
  2. METHOTREXATE [Suspect]
     Indication: BONE MARROW TRANSPLANT
  3. BUSULFAN [Suspect]
  4. CYCLOPHOSPHAMIDE [Suspect]
  5. MELPHALAN [Suspect]

REACTIONS (6)
  - DIARRHOEA [None]
  - GRAFT VERSUS HOST DISEASE [None]
  - PNEUMONIA CYTOMEGALOVIRAL [None]
  - STOMATITIS [None]
  - THROMBOTIC MICROANGIOPATHY [None]
  - VENOOCCLUSIVE LIVER DISEASE [None]
